FAERS Safety Report 8919538 (Version 1)
Quarter: 2012Q4

REPORT INFORMATION
  Report Type: 
  Country: US (occurrence: US)
  Receive Date: 20121121
  Receipt Date: 20121121
  Transmission Date: 20130627
  Serious: Yes (Hospitalization, Other)
  Sender: FDA-Public Use
  Company Number: US-BAYER-2012-119294

PATIENT
  Age: 60 Year
  Sex: Female

DRUGS (2)
  1. BETASERON [Suspect]
     Indication: MULTIPLE SCLEROSIS
     Dosage: UNK
     Dates: start: 20020725, end: 20040601
  2. BETASERON [Suspect]
     Indication: MULTIPLE SCLEROSIS
     Dosage: 8 miu, UNK
     Route: 058
     Dates: start: 20120808, end: 20121015

REACTIONS (6)
  - Asthma [None]
  - Dyspnoea [None]
  - Loss of consciousness [None]
  - Heart rate increased [None]
  - Loss of consciousness [None]
  - Fall [None]
